FAERS Safety Report 9119326 (Version 1)
Quarter: 2013Q1

REPORT INFORMATION
  Report Type: Spontaneous
  Country: CA (occurrence: CA)
  Receive Date: 20130226
  Receipt Date: 20130226
  Transmission Date: 20140127
  Serious: Yes (Other)
  Sender: FDA-Public Use
  Company Number: PHHY2013CA015229

PATIENT
  Sex: Female

DRUGS (2)
  1. ACLASTA [Suspect]
     Indication: OSTEOPOROSIS
     Dosage: UNK UKN, UNK
     Dates: start: 20110512
  2. ACLASTA [Suspect]
     Dosage: UNK UKN, UNK
     Dates: start: 20120514

REACTIONS (4)
  - Nephrosclerosis [Unknown]
  - Renal failure chronic [Unknown]
  - Creatinine renal clearance decreased [Unknown]
  - Concomitant disease progression [Unknown]
